FAERS Safety Report 23320371 (Version 1)
Quarter: 2023Q4

REPORT INFORMATION
  Report Type: Spontaneous
  Country: US (occurrence: US)
  Receive Date: 20231220
  Receipt Date: 20231220
  Transmission Date: 20240110
  Serious: No
  Sender: FDA-Public Use
  Company Number: US-PROVENTION BIO, INC.-US-PRAG-23-00093

PATIENT

DRUGS (1)
  1. TZIELD [Suspect]
     Active Substance: TEPLIZUMAB-MZWV
     Indication: Product used for unknown indication
     Dosage: UNK

REACTIONS (1)
  - Rash [Unknown]
